FAERS Safety Report 6093607-X (Version None)
Quarter: 2009Q1

REPORT INFORMATION
  Report Type: 
  Country: None (occurrence: None)
  Receive Date: 20090226
  Receipt Date: 20090218
  Transmission Date: 20090719
  Serious: Yes (Hospitalization, Other)
  Sender: FDA-Public Use
  Company Number: PHHO2009DE02496

PATIENT
  Sex: Male
  Weight: 73 kg

DRUGS (2)
  1. ZOLEDRONIC ACID [Suspect]
     Indication: METASTASES TO BONE
     Dosage: 4MG EVERY 3 MONTHS
     Route: 042
     Dates: start: 20070509
  2. SANDOCAL [Concomitant]

REACTIONS (8)
  - ALCOHOL ABUSE [None]
  - FACIAL PARESIS [None]
  - HYPERTENSION [None]
  - OSTEONECROSIS [None]
  - PERIODONTITIS [None]
  - SALIVARY GLAND NEOPLASM [None]
  - TOBACCO ABUSE [None]
  - TOOTH EXTRACTION [None]
